FAERS Safety Report 5265858-5 (Version None)
Quarter: 2007Q1

REPORT INFORMATION
  Report Type: 
  Country: None (occurrence: None)
  Receive Date: 20070312
  Receipt Date: 20070312
  Transmission Date: 20070707
  Serious: Yes (Death)
  Sender: FDA-Public Use
  Company Number: None

PATIENT
  Sex: Female
  Weight: 44.4525 kg

DRUGS (8)
  1. THALIDOMIDE [Suspect]
     Indication: METASTATIC NEOPLASM
     Dosage: 100 MG QD PO
     Route: 048
     Dates: start: 20070117, end: 20070130
  2. THALIDOMIDE [Suspect]
     Indication: SARCOMA
     Dosage: 100 MG QD PO
     Route: 048
     Dates: start: 20070117, end: 20070130
  3. TEMODAR [Suspect]
     Indication: METASTATIC NEOPLASM
     Dosage: 100 MG QD PO
     Route: 048
     Dates: start: 20070117, end: 20070130
  4. TEMODAR [Suspect]
     Indication: SARCOMA
     Dosage: 100 MG QD PO
     Route: 048
     Dates: start: 20070117, end: 20070130
  5. PLAVIX [Concomitant]
  6. LASIX [Concomitant]
  7. LISINOPRIL [Concomitant]
  8. COUMADIN [Concomitant]

REACTIONS (3)
  - DEHYDRATION [None]
  - HYPOTENSION [None]
  - RENAL FAILURE ACUTE [None]
